FAERS Safety Report 6888373-1 (Version None)
Quarter: 2010Q3

REPORT INFORMATION
  Report Type: 
  Country: None (occurrence: None)
  Receive Date: 20100730
  Receipt Date: 20100716
  Transmission Date: 20110219
  Serious: Yes (Other)
  Sender: FDA-Public Use
  Company Number: BR-GENENTECH-304531

PATIENT
  Age: 82 Year
  Sex: Female
  Weight: 68 kg

DRUGS (7)
  1. LUCENTIS [Suspect]
     Indication: RETINAL DETACHMENT
     Dosage: 1 ML, UNKNOWN
     Route: 031
     Dates: start: 20090728
  2. LUCENTIS [Suspect]
     Dosage: 1 ML, UNKNOWN
     Route: 031
     Dates: start: 20090908
  3. LUCENTIS [Suspect]
     Dosage: 1 ML, UNKNOWN
     Route: 031
     Dates: start: 20091020
  4. CINNARIZINE [Concomitant]
     Indication: PRODUCT USED FOR UNKNOWN INDICATION
     Dosage: UNK
  5. LISINOPRIL [Concomitant]
     Indication: PRODUCT USED FOR UNKNOWN INDICATION
     Dosage: UNK
  6. DIMETICONE [Concomitant]
     Indication: PRODUCT USED FOR UNKNOWN INDICATION
     Dosage: UNK
  7. MULTIVITAMIN [Concomitant]
     Indication: PRODUCT USED FOR UNKNOWN INDICATION
     Dosage: UNK

REACTIONS (1)
  - RETINAL DETACHMENT [None]
